FAERS Safety Report 9725296 (Version 1)
Quarter: 2013Q4

REPORT INFORMATION
  Report Type: Spontaneous
  Country: CA (occurrence: CA)
  Receive Date: 20131203
  Receipt Date: 20131203
  Transmission Date: 20140711
  Serious: Yes (Other)
  Sender: FDA-Public Use
  Company Number: CA-ASTRAZENECA-2013SE87067

PATIENT
  Age: 59 Year
  Sex: Male

DRUGS (4)
  1. CRESTOR [Suspect]
     Route: 048
  2. FAMVIR [Concomitant]
  3. LORAZEPAM [Concomitant]
  4. TYLENOL WITH CODEINE NO. 3 [Concomitant]

REACTIONS (2)
  - Skin exfoliation [Recovered/Resolved]
  - Skin necrosis [Recovered/Resolved]
